FAERS Safety Report 20632247 (Version 1)
Quarter: 2022Q1

REPORT INFORMATION
  Report Type: Spontaneous
  Country: US (occurrence: None)
  Receive Date: 20220324
  Receipt Date: 20220324
  Transmission Date: 20220423
  Serious: No
  Sender: FDA-Public Use
  Company Number: None

PATIENT

DRUGS (2)
  1. STERILE WATER FOR INJECTION [Suspect]
     Active Substance: WATER
     Route: 042
  2. STERILE WATER FOR IRRIGATION [Suspect]
     Active Substance: WATER
     Route: 042

REACTIONS (3)
  - Product barcode issue [None]
  - Drug monitoring procedure incorrectly performed [None]
  - Intercepted product preparation error [None]
